FAERS Safety Report 13339042 (Version 1)
Quarter: 2017Q1

REPORT INFORMATION
  Report Type: Spontaneous
  Country: US (occurrence: US)
  Receive Date: 20170315
  Receipt Date: 20170315
  Transmission Date: 20170428
  Serious: No
  Sender: FDA-Public Use
  Company Number: US-ASTRAZENECA-2017SE25226

PATIENT
  Age: 60 Year
  Sex: Female

DRUGS (2)
  1. JANUVIA [Concomitant]
     Active Substance: SITAGLIPTIN PHOSPHATE
  2. FARXIGA [Suspect]
     Active Substance: DAPAGLIFLOZIN PROPANEDIOL
     Indication: TYPE 2 DIABETES MELLITUS
     Dosage: 5.0MG UNKNOWN
     Route: 048
     Dates: start: 2017, end: 2017

REACTIONS (2)
  - Blood glucose increased [Unknown]
  - Drug ineffective [Unknown]
